FAERS Safety Report 7033355-2 (Version None)
Quarter: 2010Q4

REPORT INFORMATION
  Report Type: 
  Country: None (occurrence: None)
  Receive Date: 20101004
  Receipt Date: 20100921
  Transmission Date: 20110411
  Serious: Yes (Death, Other)
  Sender: FDA-Public Use
  Company Number: MC201000233

PATIENT
  Age: 82 Year
  Sex: Male
  Weight: 92.5 kg

DRUGS (17)
  1. ANGIOMAX [Suspect]
     Indication: PERCUTANEOUS CORONARY INTERVENTION
     Dosage: BOLUS, INTRAVENOUS
     Route: 040
     Dates: start: 20100808, end: 20100808
  2. PLAVIX [Concomitant]
  3. LOPRESSOR [Concomitant]
  4. FLOMAX (MORNIFLUMATE) [Concomitant]
  5. LECITHIN (LECITHIN) [Concomitant]
  6. POTASSIUM GLUCONATE (POTASSIUM GLUCONATE) TABLET [Concomitant]
  7. MAGNESIUM (MAGNESIUM) [Concomitant]
  8. FOLIC ACID [Concomitant]
  9. FLAXSEED OIL (LINUM USITATISSIMUM OIL) [Concomitant]
  10. LASIX [Concomitant]
  11. ASPIRIN [Concomitant]
  12. IMDUR [Concomitant]
  13. VITAMIN D (ERGOCALCIFEROL) TABLET [Concomitant]
  14. FISH OIL (FISH OIL) [Concomitant]
  15. HEPARIN [Concomitant]
  16. ZOFRAN [Concomitant]
  17. DIGOXIN [Concomitant]

REACTIONS (8)
  - CARDIAC ARREST [None]
  - COAGULATION TIME PROLONGED [None]
  - DRUG ADMINISTRATION ERROR [None]
  - OCCULT BLOOD POSITIVE [None]
  - THROMBOSIS [None]
  - VENTRICULAR FIBRILLATION [None]
  - VENTRICULAR TACHYCARDIA [None]
  - WRONG TECHNIQUE IN DRUG USAGE PROCESS [None]
